FAERS Safety Report 4984632-8 (Version None)
Quarter: 2006Q2

REPORT INFORMATION
  Report Type: 
  Country: None (occurrence: None)
  Receive Date: 20060427
  Receipt Date: 20050725
  Transmission Date: 20061013
  Serious: Yes (Life-Threatening, Hospitalization, Disabling)
  Sender: FDA-Public Use
  Company Number: DE-MERCK-0507DEU00195

PATIENT
  Age: 57 Year
  Sex: Male
  Weight: 81 kg

DRUGS (10)
  1. VIOXX [Suspect]
     Indication: PAIN
     Route: 048
     Dates: start: 20010313, end: 20020312
  2. VIOXX [Suspect]
     Route: 048
     Dates: end: 20030404
  3. VIOXX [Suspect]
     Route: 048
     Dates: end: 20021129
  4. VIOXX [Suspect]
     Route: 048
     Dates: start: 20021228
  5. PANTOPRAZOLE SODIUM [Concomitant]
     Indication: GASTRIC ULCER
     Route: 065
     Dates: start: 19990801
  6. METHOTREXATE [Concomitant]
     Indication: MUSCULOSKELETAL PAIN
     Route: 065
     Dates: start: 19990801
  7. VIOXX [Suspect]
     Indication: MUSCULOSKELETAL PAIN
     Route: 048
     Dates: start: 20010313, end: 20020312
  8. VIOXX [Suspect]
     Route: 048
     Dates: end: 20030404
  9. VIOXX [Suspect]
     Route: 048
     Dates: end: 20021129
  10. VIOXX [Suspect]
     Route: 048
     Dates: start: 20021228

REACTIONS (12)
  - BENIGN PROSTATIC HYPERPLASIA [None]
  - CHEST DISCOMFORT [None]
  - CHOLELITHIASIS [None]
  - CORONARY ARTERY DISEASE [None]
  - GASTRITIS [None]
  - MYOCARDIAL INFARCTION [None]
  - PAIN [None]
  - PALPITATIONS [None]
  - RESTLESS LEGS SYNDROME [None]
  - SNORING [None]
  - TOOTH DISORDER [None]
  - VENTRICULAR EXTRASYSTOLES [None]
